FAERS Safety Report 10075021 (Version 1)
Quarter: 2014Q2

REPORT INFORMATION
  Report Type: Spontaneous
  Country: US (occurrence: US)
  Receive Date: 20140414
  Receipt Date: 20140414
  Transmission Date: 20141212
  Serious: No
  Sender: FDA-Public Use
  Company Number: US-BIOGENIDEC-2014BI028772

PATIENT
  Age: 39 Year
  Sex: Female

DRUGS (7)
  1. TECFIDERA [Suspect]
     Indication: MULTIPLE SCLEROSIS
     Route: 048
     Dates: start: 20140311, end: 20140317
  2. TECFIDERA [Suspect]
     Indication: MULTIPLE SCLEROSIS
     Route: 048
     Dates: start: 20140318
  3. AMPYRA [Concomitant]
     Route: 048
  4. CYMBALTA [Concomitant]
     Route: 048
  5. TRIMETHOPRIM [Concomitant]
     Route: 048
  6. BACLOFEN [Concomitant]
     Route: 048
  7. NUVIGIL [Concomitant]
     Route: 048

REACTIONS (3)
  - Gastric disorder [Recovered/Resolved]
  - Rash [Recovered/Resolved]
  - Burning sensation [Recovered/Resolved]
